FAERS Safety Report 4775024-5 (Version None)
Quarter: 2005Q3

REPORT INFORMATION
  Report Type: 
  Country: None (occurrence: None)
  Receive Date: 20050920
  Receipt Date: 20050909
  Transmission Date: 20060218
  Serious: Yes (Other)
  Sender: FDA-Public Use
  Company Number: 2005126534

PATIENT
  Sex: Male

DRUGS (1)
  1. LYRICA [Suspect]
     Indication: ILL-DEFINED DISORDER
     Dosage: 75 MG (50 MG, 2 IN 1 D), ORAL
     Route: 048
     Dates: start: 20050901

REACTIONS (4)
  - DIPLOPIA [None]
  - HALLUCINATION [None]
  - INSOMNIA [None]
  - MUSCLE SPASMS [None]
